FAERS Safety Report 4475882-8 (Version None)
Quarter: 2004Q4

REPORT INFORMATION
  Report Type: 
  Country: None (occurrence: None)
  Receive Date: 20041012
  Receipt Date: 20040928
  Transmission Date: 20050328
  Serious: Yes (Death, Hospitalization)
  Sender: FDA-Public Use
  Company Number: 2004236438US

PATIENT
  Age: 61 Year
  Sex: Male
  Weight: 106.6 kg

DRUGS (6)
  1. CELEBREX [Suspect]
     Indication: ARTHRITIS
     Dosage: 200 MG, QD,
     Dates: start: 20010426, end: 20021022
  2. COZAAR [Concomitant]
  3. ACIPHEX [Concomitant]
  4. PREDNISONE [Concomitant]
  5. TERAZOSIN HCL [Concomitant]
  6. HYDROCHLOROTHIAZIDE [Concomitant]

REACTIONS (14)
  - ANTINUCLEAR ANTIBODY POSITIVE [None]
  - ASPIRATION [None]
  - BLOOD FIBRINOGEN INCREASED [None]
  - BLOOD UREA INCREASED [None]
  - CARDIAC ARREST [None]
  - CARDIAC DISORDER [None]
  - CHEST X-RAY ABNORMAL [None]
  - GASTROINTESTINAL HAEMORRHAGE [None]
  - HAEMATOCHEZIA [None]
  - HAEMATOCRIT DECREASED [None]
  - HAEMOGLOBIN DECREASED [None]
  - IMPLANT SITE HAEMORRHAGE [None]
  - OSTEOARTHRITIS [None]
  - THROMBOCYTOPENIA [None]
